FAERS Safety Report 10255441 (Version 1)
Quarter: 2014Q2

REPORT INFORMATION
  Report Type: Spontaneous
  Country: BR (occurrence: BR)
  Receive Date: 20140624
  Receipt Date: 20140624
  Transmission Date: 20141212
  Serious: Yes (Other)
  Sender: FDA-Public Use
  Company Number: BR-JNJFOC-20140612468

PATIENT
  Sex: Female

DRUGS (3)
  1. SIMPONI [Suspect]
     Indication: PRODUCT USED FOR UNKNOWN INDICATION
     Route: 058
     Dates: start: 201307
  2. ARAVA [Concomitant]
     Route: 065
     Dates: start: 2011
  3. HYDROXYCHLOROQUINE SULFATE [Concomitant]
     Dosage: 0.5 DOSAGE OF 400 MG
     Route: 065
     Dates: start: 2012

REACTIONS (2)
  - Hand deformity [Not Recovered/Not Resolved]
  - Disease progression [Unknown]
